FAERS Safety Report 21569250 (Version 2)
Quarter: 2022Q4

REPORT INFORMATION
  Report Type: Report from Study
  Country: US (occurrence: US)
  Receive Date: 20221109
  Receipt Date: 20221116
  Transmission Date: 20230113
  Serious: Yes (Death, Hospitalization)
  Sender: FDA-Public Use
  Company Number: US-ABBVIE-4189549

PATIENT
  Sex: Male
  Weight: 113 kg

DRUGS (2)
  1. DUOPA [Suspect]
     Active Substance: CARBIDOPA\LEVODOPA
     Indication: Parkinson^s disease
     Route: 050
     Dates: start: 20181212, end: 20220913
  2. DUOPA [Suspect]
     Active Substance: CARBIDOPA\LEVODOPA

REACTIONS (9)
  - Haematological infection [Fatal]
  - Stoma site discharge [Recovering/Resolving]
  - COVID-19 [Recovered/Resolved]
  - Fall [Recovered/Resolved]
  - Lethargy [Not Recovered/Not Resolved]
  - Dementia [Not Recovered/Not Resolved]
  - SARS-CoV-2 antibody test positive [Recovered/Resolved]
  - Septic shock [Fatal]
  - Hallucination, visual [Not Recovered/Not Resolved]

NARRATIVE: CASE EVENT DATE: 20200101
